FAERS Safety Report 13492230 (Version 1)
Quarter: 2017Q2

REPORT INFORMATION
  Report Type: Spontaneous
  Country: US (occurrence: US)
  Receive Date: 20170427
  Receipt Date: 20170427
  Transmission Date: 20170830
  Serious: No
  Sender: FDA-Public Use
  Company Number: US-PFIZER INC-2017179736

PATIENT
  Age: 87 Year
  Sex: Female

DRUGS (1)
  1. AMLODIPINE BESILATE [Suspect]
     Active Substance: AMLODIPINE BESYLATE
     Indication: HYPERTENSION
     Dosage: 2.5 MG, UNK

REACTIONS (11)
  - Drug ineffective [Unknown]
  - Cough [Unknown]
  - Rosacea [Unknown]
  - Pharyngeal oedema [Unknown]
  - Dysphonia [Unknown]
  - Lip dry [Unknown]
  - Throat irritation [Unknown]
  - Erythema [Unknown]
  - Visual acuity reduced [Unknown]
  - Flushing [Unknown]
  - Dysphagia [Unknown]
